FAERS Safety Report 7552486-1 (Version None)
Quarter: 2011Q2

REPORT INFORMATION
  Report Type: 
  Country: None (occurrence: None)
  Receive Date: 20110616
  Receipt Date: 20110606
  Transmission Date: 20111010
  Serious: Yes (Hospitalization)
  Sender: FDA-Public Use
  Company Number: MX-SANOFI-AVENTIS-2011SA023907

PATIENT
  Age: 18 Year
  Sex: Female
  Weight: 39 kg

DRUGS (12)
  1. BLINDED THERAPY [Suspect]
     Dates: start: 20110228, end: 20110401
  2. ETHAMBUTOL HYDROCHLORIDE [Suspect]
     Indication: PULMONARY TUBERCULOSIS
     Dosage: STARTED ON 24-MAY-2011.
     Route: 048
     Dates: start: 20110101, end: 20110530
  3. PYRAZINAMIDE [Suspect]
     Dates: start: 20110228, end: 20110401
  4. AMBROXOL [Suspect]
     Route: 048
     Dates: start: 20110228, end: 20110406
  5. PYRAZINAMIDE [Suspect]
     Indication: PULMONARY TUBERCULOSIS
     Dosage: STARTED ON 19-MAY-2011.
     Route: 048
     Dates: start: 20110101, end: 20110530
  6. ACETAMINOPHEN [Suspect]
     Route: 048
     Dates: start: 20110228, end: 20110406
  7. BLINDED THERAPY [Suspect]
     Dates: start: 20110228, end: 20110401
  8. ACETAMINOPHEN [Suspect]
     Route: 042
  9. RIFAMPICIN [Suspect]
     Indication: PULMONARY TUBERCULOSIS
     Dosage: STARTED ON 09-MAY-2011.
     Route: 048
     Dates: start: 20110101, end: 20110530
  10. RIFAMPICIN [Suspect]
     Dates: start: 20110228, end: 20110401
  11. ISONIAZID [Suspect]
     Indication: PULMONARY TUBERCULOSIS
     Dosage: STARTED ON 14-MAY-2011.
     Route: 048
     Dates: start: 20110101, end: 20110530
  12. BLINDED THERAPY [Suspect]
     Indication: PULMONARY TUBERCULOSIS
     Dates: start: 20110228, end: 20110401

REACTIONS (19)
  - RASH MACULO-PAPULAR [None]
  - DYSPNOEA [None]
  - DERMATITIS [None]
  - LEUKOCYTOSIS [None]
  - DRUG RASH WITH EOSINOPHILIA AND SYSTEMIC SYMPTOMS [None]
  - FACE OEDEMA [None]
  - APHTHOUS STOMATITIS [None]
  - ARTHRALGIA [None]
  - TACHYCARDIA [None]
  - HEPATOMEGALY [None]
  - TRANSAMINASES INCREASED [None]
  - PROTHROMBIN TIME PROLONGED [None]
  - SKIN EXFOLIATION [None]
  - ORAL PAIN [None]
  - ASTHENIA [None]
  - PYREXIA [None]
  - MYALGIA [None]
  - URINARY TRACT INFECTION [None]
  - HAEMATURIA [None]
